FAERS Safety Report 4354933-5 (Version None)
Quarter: 2004Q2

REPORT INFORMATION
  Report Type: 
  Country: None (occurrence: None)
  Receive Date: 20040504
  Receipt Date: 20040423
  Transmission Date: 20050107
  Serious: Yes (Hospitalization)
  Sender: FDA-Public Use
  Company Number: 2004-114420-NL

PATIENT
  Age: 52 Year
  Sex: Male

DRUGS (3)
  1. MIRTAZAPINE [Suspect]
     Indication: DEPRESSION
     Dosage: 15 MG/30 MG/45 MG/30 MG; ORAL
     Route: 048
     Dates: start: 20031001
  2. MIRTAZAPINE [Suspect]
     Indication: PROPHYLAXIS
     Dosage: 15 MG/30 MG/45 MG/30 MG; ORAL
     Route: 048
     Dates: start: 20031001
  3. CUANPACINE HYDROCHLORIDE [Concomitant]

REACTIONS (2)
  - OPEN ANGLE GLAUCOMA [None]
  - VISUAL ACUITY REDUCED [None]
